FAERS Safety Report 21720679 (Version 2)
Quarter: 2022Q4

REPORT INFORMATION
  Report Type: Spontaneous
  Country: NL (occurrence: NL)
  Receive Date: 20221213
  Receipt Date: 20221215
  Transmission Date: 20230113
  Serious: Yes (Other)
  Sender: FDA-Public Use
  Company Number: NL-Merz Pharmaceuticals GmbH-22-03759

PATIENT
  Age: 61 Year
  Sex: Male

DRUGS (11)
  1. XEOMIN [Suspect]
     Active Substance: INCOBOTULINUMTOXINA
     Indication: Muscle spasticity
     Route: 030
     Dates: start: 20220928, end: 20220928
  2. XEOMIN [Suspect]
     Active Substance: INCOBOTULINUMTOXINA
     Route: 030
     Dates: start: 20220928, end: 20220928
  3. XEOMIN [Suspect]
     Active Substance: INCOBOTULINUMTOXINA
  4. DAPAGLIFLOZIN [Concomitant]
     Active Substance: DAPAGLIFLOZIN
  5. GLICLAZIDE [Concomitant]
     Active Substance: GLICLAZIDE
  6. VALPROIC ACID [Concomitant]
     Active Substance: VALPROIC ACID
  7. LEVETIRACETAM [Concomitant]
     Active Substance: LEVETIRACETAM
  8. LOSARTAN [Concomitant]
     Active Substance: LOSARTAN
  9. AMLODIPINE [Concomitant]
     Active Substance: AMLODIPINE BESYLATE
  10. ROSUVASTATIN [Concomitant]
     Active Substance: ROSUVASTATIN
  11. METOPROLOL [Concomitant]
     Active Substance: METOPROLOL

REACTIONS (3)
  - Epilepsy [Recovered/Resolved]
  - Fall [Recovered/Resolved]
  - Pain [Recovered/Resolved]

NARRATIVE: CASE EVENT DATE: 20220101
